FAERS Safety Report 9478187 (Version 2)
Quarter: 2013Q4

REPORT INFORMATION
  Report Type: Spontaneous
  Country: GB (occurrence: GB)
  Receive Date: 20130827
  Receipt Date: 20131121
  Transmission Date: 20140711
  Serious: Yes (Disabling)
  Sender: FDA-Public Use
  Company Number: GB-PFIZER INC-2013244781

PATIENT
  Age: 82 Year
  Sex: Female

DRUGS (14)
  1. PREGABALIN [Suspect]
     Indication: DIABETIC NEUROPATHY
     Dosage: 150 MG, 2X/DAY
     Route: 048
     Dates: start: 201203, end: 20130613
  2. MIRTAZAPINE [Concomitant]
     Indication: DEPRESSION
     Dosage: 15 MG, 1X/DAY (AT NIGHT)
     Route: 048
  3. PREDNISOLONE [Concomitant]
     Dosage: UNK
  4. RAMIPRIL [Concomitant]
     Dosage: UNK
  5. MOXONIDINE [Concomitant]
     Dosage: UNK
  6. BUMETANIDE [Concomitant]
     Dosage: UNK
  7. DIGOXIN [Concomitant]
     Dosage: UNK
  8. SIMVASTATIN [Concomitant]
     Dosage: UNK
  9. WARFARIN [Concomitant]
     Dosage: UNK
  10. LEVOTHYROXINE [Concomitant]
     Dosage: UNK
  11. ZOPICLONE [Concomitant]
     Dosage: UNK
  12. DILTIAZEM [Concomitant]
     Dosage: UNK
  13. FUROSEMIDE [Concomitant]
     Dosage: UNK
  14. ALENDRONIC ACID [Concomitant]
     Dosage: UNK

REACTIONS (2)
  - Myoclonus [Recovered/Resolved]
  - Fall [Recovered/Resolved]
